FAERS Safety Report 7288825 (Version 2)
Quarter: 2014Q3

REPORT INFORMATION
  Report Type: Spontaneous
  Country: US (occurrence: None)
  Receive Date: 20100202
  Receipt Date: 20140926
  Transmission Date: 20150326
  Serious: Yes (Other)
  Sender: FDA-Public Use
  Company Number: 2010S1000305

PATIENT
  Age: 62 Year
  Sex: Male

DRUGS (10)
  1. DIAZEPAM (DIAZEPAM) [Concomitant]
     Active Substance: DIAZEPAM
  2. PHOSPHO-SODA [Suspect]
     Active Substance: SODIUM PHOSPHATE, DIBASIC\SODIUM PHOSPHATE, MONOBASIC
     Indication: COLONOSCOPY
     Dosage: PO
     Route: 048
     Dates: start: 20070621
  3. ENDOCET (PARACETAMOL, OXYCODONE HYDROCHLORIDE) [Concomitant]
  4. ATENOLOL (ATENOLOL) [Concomitant]
     Active Substance: ATENOLOL
  5. ASPIRIN (ACETYLSALICYLIC ACID) [Concomitant]
     Active Substance: ASPIRIN
  6. NORVASC [Concomitant]
     Active Substance: AMLODIPINE BESYLATE
  7. PREVACID (PREVACIC) [Concomitant]
  8. BACLOFEN (BACLOFEN) [Concomitant]
     Active Substance: BACLOFEN
  9. BENICAR (OLMESARTAN MEDOXOMIL0 [Concomitant]
  10. LYRICA (PREGAGALIN) [Concomitant]

REACTIONS (14)
  - Anaemia [None]
  - Renal failure acute [None]
  - Oedema peripheral [None]
  - Renal failure chronic [None]
  - Vitamin D decreased [None]
  - Hypotension [None]
  - Cholelithiasis [None]
  - Hyponatraemia [None]
  - Renal failure [None]
  - Nephrosclerosis [None]
  - Hypovolaemia [None]
  - Renal artery stenosis [None]
  - Nephrotic syndrome [None]
  - Coeliac artery stenosis [None]

NARRATIVE: CASE EVENT DATE: 2008
